FAERS Safety Report 8281087-5 (Version None)
Quarter: 2012Q2

REPORT INFORMATION
  Report Type: 
  Country: None (occurrence: None)
  Receive Date: 20120413
  Receipt Date: 20120402
  Transmission Date: 20120825
  Serious: Yes (Other)
  Sender: FDA-Public Use
  Company Number: BE-BRISTOL-MYERS SQUIBB COMPANY-16498529

PATIENT
  Age: 41 Year
  Sex: Male
  Weight: 132 kg

DRUGS (4)
  1. METFORMIN HCL [Suspect]
     Dosage: 1DF=850 2X
  2. TESTOSTERONE [Suspect]
  3. IRBESARTAN [Suspect]
     Indication: HYPERTENSION
     Route: 048
  4. CITALOPRAM HYDROBROMIDE [Suspect]

REACTIONS (4)
  - CYTOLYTIC HEPATITIS [None]
  - WEIGHT INCREASED [None]
  - VITAMIN D DEFICIENCY [None]
  - LOW DENSITY LIPOPROTEIN INCREASED [None]
